FAERS Safety Report 23872727 (Version 1)
Quarter: 2024Q2

REPORT INFORMATION
  Report Type: Spontaneous
  Country: FR (occurrence: FR)
  Receive Date: 20240520
  Receipt Date: 20240520
  Transmission Date: 20240715
  Serious: Yes (Other)
  Sender: FDA-Public Use
  Company Number: FR-AFSSAPS-AVNT2024000364

PATIENT
  Age: 46 Year
  Sex: Female

DRUGS (1)
  1. TRAMADOL [Suspect]
     Active Substance: TRAMADOL\TRAMADOL HYDROCHLORIDE
     Indication: Product used for unknown indication
     Dosage: 4X50MG ET 2X100 MG LP/J
     Route: 048
     Dates: start: 2019

REACTIONS (1)
  - Drug use disorder [Not Recovered/Not Resolved]
